FAERS Safety Report 5877271 (Version 1)
Quarter: 2020Q3

REPORT INFORMATION
  Report Type: Spontaneous
  Country: FR (occurrence: None)
  Receive Date: 20050906
  Receipt Date: 20050906
  Transmission Date: 20201105
  Serious: Yes (Death, Hospitalization, Other)
  Sender: FDA-Public Use
  Company Number: FR-2005-017788

PATIENT
  Age: 78 Year
  Sex: Male

DRUGS (13)
  1. AMLODIPINE BESYLATE. [Concomitant]
     Active Substance: AMLODIPINE BESYLATE
  2. CELOCURIN [Suspect]
     Active Substance: SUCCINYLCHOLINE CHLORIDE
     Dates: start: 20030806, end: 20030806
  3. HYPNOMIDATE [ETOMIDATE SULFATE] [Suspect]
     Active Substance: ETOMIDATE SULFATE
     Indication: PRODUCT USED FOR UNKNOWN INDICATION
     Dates: start: 20030806, end: 20030806
  4. ALLOPURINOL. [Concomitant]
     Active Substance: ALLOPURINOL
  5. SOTALOL HYDROCHLORIDE. [Suspect]
     Active Substance: SOTALOL HYDROCHLORIDE
     Dosage: 80 MG, 1X/DAY, ORAL
     Route: 048
     Dates: end: 20030806
  6. LASIX [Concomitant]
     Active Substance: FUROSEMIDE
  7. DIPRIVAN [Suspect]
     Active Substance: PROPOFOL
     Dosage: 15?25?35?40?50, UNK
     Dates: start: 20030806, end: 20030806
  8. GLUCOPHAGE [Concomitant]
     Active Substance: METFORMIN HYDROCHLORIDE
  9. GLYBURIDE. [Concomitant]
     Active Substance: GLYBURIDE
  10. NIMBEX [Suspect]
     Active Substance: CISATRACURIUM BESYLATE
     Dates: start: 20030806, end: 20030806
  11. SUFENTA [Suspect]
     Active Substance: SUFENTANIL CITRATE
     Dosage: 5 0 0 0 0, UNK
     Dates: start: 20030806, end: 20030806
  12. EPHEDRINE. [Suspect]
     Active Substance: EPHEDRINE
     Dates: start: 20030806, end: 20030806
  13. ZOCOR [Concomitant]
     Active Substance: SIMVASTATIN

REACTIONS (12)
  - Cholelithiasis [None]
  - Ventricular extrasystoles [None]
  - Electrocardiogram PR prolongation [None]
  - Pulseless electrical activity [None]
  - Atrial fibrillation [None]
  - Atrioventricular block first degree [None]
  - Cardiac arrest [None]
  - Ventricular tachycardia [None]
  - Cholangitis [None]
  - Septic shock [None]
  - Blood pressure decreased [None]
  - Blood pressure diastolic increased [None]

NARRATIVE: CASE EVENT DATE: 20030806
